FAERS Safety Report 18171494 (Version 1)
Quarter: 2020Q3

REPORT INFORMATION
  Report Type: Report from Study
  Country: US (occurrence: US)
  Receive Date: 20200819
  Receipt Date: 20200819
  Transmission Date: 20201103
  Serious: No
  Sender: FDA-Public Use
  Company Number: US-AEGERION PHARMACEUTICAL, INC-AEGR004466

PATIENT
  Age: 43 Year
  Sex: Female

DRUGS (9)
  1. VYTORIN [Concomitant]
     Active Substance: EZETIMIBE\SIMVASTATIN
     Indication: HYPERCHOLESTEROLAEMIA
     Dosage: 10/40 MG, QD
     Route: 048
     Dates: start: 20070115
  2. JUXTAPID [Suspect]
     Active Substance: LOMITAPIDE MESYLATE
     Indication: TYPE IIA HYPERLIPIDAEMIA
     Dosage: 5 MG, QD
     Route: 048
     Dates: start: 20161007, end: 20161130
  3. JUXTAPID [Suspect]
     Active Substance: LOMITAPIDE MESYLATE
     Dosage: 10 MG, QD
     Route: 048
     Dates: start: 20161201, end: 20161213
  4. NIASPAN ER [Concomitant]
     Active Substance: NIACIN
     Indication: HYPERLIPIDAEMIA
     Dosage: 1000 MG, QD
     Route: 048
     Dates: start: 20070115
  5. JUXTAPID [Suspect]
     Active Substance: LOMITAPIDE MESYLATE
     Dosage: 20 MG, QD
     Route: 048
     Dates: start: 20170630, end: 20170725
  6. JUXTAPID [Suspect]
     Active Substance: LOMITAPIDE MESYLATE
     Dosage: 20 MG, QD
     Route: 048
     Dates: start: 20161214, end: 20170428
  7. JUXTAPID [Suspect]
     Active Substance: LOMITAPIDE MESYLATE
     Dosage: 30 MG, QD
     Route: 048
     Dates: start: 20170429, end: 20170629
  8. JUXTAPID [Suspect]
     Active Substance: LOMITAPIDE MESYLATE
     Dosage: 10 MG, QD
     Route: 048
     Dates: start: 20190104
  9. FISH OIL [Concomitant]
     Active Substance: FISH OIL
     Indication: HYPERCHOLESTEROLAEMIA
     Dosage: 100 MG, BID
     Route: 048
     Dates: start: 20110208

REACTIONS (2)
  - Blood cholesterol increased [Unknown]
  - Low density lipoprotein increased [Unknown]

NARRATIVE: CASE EVENT DATE: 20190820
